FAERS Safety Report 7710354-6 (Version None)
Quarter: 2011Q3

REPORT INFORMATION
  Report Type: 
  Country: None (occurrence: None)
  Receive Date: 20110825
  Receipt Date: 20110629
  Transmission Date: 20111222
  Serious: No
  Sender: FDA-Public Use
  Company Number: US-MYLANLABS-2011S1013858

PATIENT

DRUGS (1)
  1. LANSOPRAZOLE [Suspect]
     Indication: GASTROOESOPHAGEAL REFLUX DISEASE

REACTIONS (3)
  - DRUG INEFFECTIVE [None]
  - DYSPEPSIA [None]
  - NAUSEA [None]
